FAERS Safety Report 8068288-6 (Version None)
Quarter: 2012Q1

REPORT INFORMATION
  Report Type: 
  Country: None (occurrence: None)
  Receive Date: 20120124
  Receipt Date: 20111007
  Transmission Date: 20120608
  Serious: No
  Sender: FDA-Public Use
  Company Number: US-AMGEN-USASP2011052074

PATIENT
  Age: 89 Year
  Sex: Female

DRUGS (10)
  1. DILTIAZEM [Concomitant]
  2. PROLIA [Suspect]
     Indication: OSTEOPOROSIS POSTMENOPAUSAL
     Dosage: 60 MG, Q6MO
     Dates: start: 20110101
  3. CALCIUM WITH VITAMIN D             /00944201/ [Concomitant]
  4. MULTIVITAMIN                       /00097801/ [Concomitant]
  5. AMLODIPINE [Concomitant]
  6. VITAMIN B12                        /00056201/ [Concomitant]
  7. DEXILANT [Concomitant]
  8. SIMVASTATIN [Concomitant]
  9. ALPRAZOLAM [Concomitant]
  10. ATENOLOL [Concomitant]

REACTIONS (2)
  - BALANCE DISORDER [None]
  - DIZZINESS [None]
